FAERS Safety Report 8548266-0 (Version None)
Quarter: 2012Q3

REPORT INFORMATION
  Report Type: 
  Country: None (occurrence: None)
  Receive Date: 20120730
  Receipt Date: 20120716
  Transmission Date: 20120928
  Serious: Yes (Hospitalization)
  Sender: FDA-Public Use
  Company Number: GB-JNJFOC-20120708260

PATIENT
  Sex: Male
  Weight: 114 kg

DRUGS (13)
  1. ENOXAPARIN [Concomitant]
     Route: 065
     Dates: start: 20101008, end: 20120125
  2. FLUOXETINE HCL [Concomitant]
     Route: 065
     Dates: start: 20120125
  3. TRIFLUOPERAZINE HCL [Concomitant]
     Route: 065
     Dates: start: 20101008, end: 20120125
  4. ZOPICLONE [Concomitant]
     Route: 065
     Dates: start: 20101008, end: 20120418
  5. TRIMEPRAZINE TAB [Concomitant]
     Route: 065
     Dates: start: 20120125
  6. ACETAMINOPHEN [Concomitant]
     Route: 065
     Dates: start: 20101008, end: 20120125
  7. PREDNISOLONE [Concomitant]
     Route: 065
     Dates: start: 20111229, end: 20120125
  8. OMEPRAZOLE [Concomitant]
     Route: 065
     Dates: start: 20120125
  9. STELARA [Suspect]
     Indication: PSORIASIS
     Route: 058
     Dates: start: 20101008, end: 20110414
  10. CODEINE PHOSPHATE [Concomitant]
     Route: 065
     Dates: start: 20101008, end: 20120125
  11. BISOPROLOL FUMARATE [Concomitant]
     Route: 065
     Dates: start: 20120125
  12. TRIMEPRAZINE TAB [Concomitant]
     Route: 065
     Dates: start: 20101008, end: 20120125
  13. AMLODIPINE [Concomitant]
     Route: 065
     Dates: start: 20120125

REACTIONS (1)
  - ACUTE MYELOID LEUKAEMIA [None]
